FAERS Safety Report 10619168 (Version 1)
Quarter: 2014Q4

REPORT INFORMATION
  Report Type: Spontaneous
  Country: CA (occurrence: None)
  Receive Date: 20141126
  Receipt Date: 20141126
  Transmission Date: 20150529
  Serious: Yes (Other)
  Sender: FDA-Public Use
  Company Number: 2633668

PATIENT
  Age: 05 Year
  Sex: Female

DRUGS (3)
  1. DACTINOMYCIN [Suspect]
     Active Substance: DACTINOMYCIN
  2. DOXORUBICIN HYDROCHLORIDE. [Suspect]
     Active Substance: DOXORUBICIN HYDROCHLORIDE
     Indication: NEPHROBLASTOMA
  3. VINCRISTINE SULFATE. [Suspect]
     Active Substance: VINCRISTINE SULFATE
     Indication: NEPHROBLASTOMA

REACTIONS (3)
  - Respiratory distress [None]
  - Tachycardia [None]
  - Pulmonary arterial hypertension [None]
